FAERS Safety Report 15565482 (Version 1)
Quarter: 2018Q4

REPORT INFORMATION
  Report Type: Other
  Country: TR (occurrence: TR)
  Receive Date: 20181030
  Receipt Date: 20181030
  Transmission Date: 20190205
  Serious: Yes (Hospitalization)
  Sender: FDA-Public Use
  Company Number: TR-APPCO PHARMA LLC-2058208

PATIENT
  Age: 24 Year
  Sex: Male

DRUGS (6)
  1. METHYLPHENIDATE. [Concomitant]
     Active Substance: METHYLPHENIDATE
     Route: 065
  2. QUETIAPINE. [Concomitant]
     Active Substance: QUETIAPINE
     Route: 065
  3. MODAFINIL. [Suspect]
     Active Substance: MODAFINIL
     Indication: ATTENTION DEFICIT/HYPERACTIVITY DISORDER
     Route: 065
  4. RISPERIDONE. [Concomitant]
     Active Substance: RISPERIDONE
     Route: 065
  5. LORAZEPAM. [Concomitant]
     Active Substance: LORAZEPAM
     Route: 065
  6. DIAZEPAM. [Concomitant]
     Active Substance: DIAZEPAM
     Route: 065

REACTIONS (7)
  - Overdose [Unknown]
  - Prescription drug used without a prescription [Unknown]
  - Drug abuse [Unknown]
  - Intentional product misuse [Unknown]
  - Substance-induced psychotic disorder [Unknown]
  - Withdrawal syndrome [Unknown]
  - Drug dependence [Unknown]
